FAERS Safety Report 7454886-7 (Version None)
Quarter: 2011Q2

REPORT INFORMATION
  Report Type: 
  Country: None (occurrence: None)
  Receive Date: 20110503
  Receipt Date: 20110428
  Transmission Date: 20111010
  Serious: Yes (Hospitalization, Other)
  Sender: FDA-Public Use
  Company Number: US-BRISTOL-MYERS SQUIBB COMPANY-15519556

PATIENT
  Age: 45 Year
  Sex: Male

DRUGS (11)
  1. TYLENOL (CAPLET) [Concomitant]
     Route: 048
  2. ATIVAN [Concomitant]
     Dosage: AT BEDTIME
     Route: 048
  3. COLACE [Concomitant]
     Dosage: CAPS
     Route: 048
  4. PEPCID [Concomitant]
     Route: 048
  5. COMPAZINE [Concomitant]
     Indication: NAUSEA
     Dosage: TABS PRN
     Route: 048
  6. ADVAIR DISKUS 100/50 [Concomitant]
     Dosage: 1DF:1 INHALATION 250/50 UNITS NOS
     Route: 055
  7. DECADRON [Concomitant]
     Dosage: TABS TOTAL:50 TABS
     Route: 048
  8. VITAMIN D [Concomitant]
     Dosage: 1DF:2000 UNITS TABS
     Route: 048
  9. IPILIMUMAB [Suspect]
     Indication: MALIGNANT MELANOMA
     Route: 042
     Dates: start: 20110121
  10. ALBUTEROL INHALER [Concomitant]
     Indication: ASTHMA
     Dosage: Q6 HOURS
     Route: 055
  11. ZOFRAN [Concomitant]
     Indication: NAUSEA
     Dosage: TABS Q8 HOURS
     Route: 048

REACTIONS (1)
  - VIITH NERVE PARALYSIS [None]
